FAERS Safety Report 5011172-2 (Version None)
Quarter: 2006Q2

REPORT INFORMATION
  Report Type: 
  Country: None (occurrence: None)
  Receive Date: 20060523
  Receipt Date: 20060509
  Transmission Date: 20061013
  Serious: Yes (Other)
  Sender: FDA-Public Use
  Company Number: 060512-0000453

PATIENT

DRUGS (2)
  1. INDOMETHACIN [Suspect]
     Indication: PATENT DUCTUS ARTERIOSUS
     Dosage: 0.2 MG/KG; EVERY 12 HRS X 3; IV
     Route: 042
  2. SURFACTANT [Concomitant]

REACTIONS (1)
  - SEPSIS NEONATAL [None]
